FAERS Safety Report 11392637 (Version 2)
Quarter: 2015Q3

REPORT INFORMATION
  Report Type: Spontaneous
  Country: US (occurrence: US)
  Receive Date: 20150818
  Receipt Date: 20150828
  Transmission Date: 20151125
  Serious: No
  Sender: FDA-Public Use
  Company Number: US-PFIZER INC-2015274727

PATIENT
  Age: 52 Year
  Sex: Female
  Weight: 95 kg

DRUGS (11)
  1. TYLENOL [Concomitant]
     Active Substance: ACETAMINOPHEN
     Indication: HEADACHE
  2. FISH OIL [Concomitant]
     Active Substance: FISH OIL
  3. LANSOPRAZOLE. [Concomitant]
     Active Substance: LANSOPRAZOLE
     Indication: DYSPEPSIA
  4. LYRICA [Suspect]
     Active Substance: PREGABALIN
     Indication: NECK PAIN
     Dosage: UNK, 2X/DAY
     Dates: start: 201508
  5. CLARITIN 24HR [Concomitant]
     Indication: HYPERSENSITIVITY
  6. MAGNESIUM [Concomitant]
     Active Substance: MAGNESIUM
  7. VITAMIN B [Concomitant]
     Active Substance: VITAMIN B
  8. VITAMIN D [Concomitant]
     Active Substance: CHOLECALCIFEROL
  9. TYLENOL [Concomitant]
     Active Substance: ACETAMINOPHEN
     Indication: NECK PAIN
  10. CALCIUM [Concomitant]
     Active Substance: CALCIUM
  11. CINNAMON. [Concomitant]
     Active Substance: CINNAMON

REACTIONS (1)
  - Drug ineffective [Unknown]
